FAERS Safety Report 8885962 (Version 2)
Quarter: 2012Q4

REPORT INFORMATION
  Report Type: 
  Country: US (occurrence: US)
  Receive Date: 20121105
  Receipt Date: 20121210
  Transmission Date: 20130627
  Serious: Yes (Hospitalization, Other)
  Sender: FDA-Public Use
  Company Number: US-PFIZER INC-2012273975

PATIENT
  Sex: Female

DRUGS (2)
  1. EFFEXOR XR [Suspect]
     Dosage: 75 mg, UNK
  2. LIPITOR [Suspect]
     Dosage: 10 mg, UNK

REACTIONS (3)
  - Urinary tract infection [Unknown]
  - Cystitis [Unknown]
  - Cough [Unknown]
